FAERS Safety Report 18022514 (Version 1)
Quarter: 2020Q3

REPORT INFORMATION
  Report Type: Spontaneous
  Country: US (occurrence: US)
  Receive Date: 20200714
  Receipt Date: 20200714
  Transmission Date: 20201103
  Serious: No
  Sender: FDA-Public Use
  Company Number: NVSC2020US194575

PATIENT
  Sex: Female

DRUGS (1)
  1. TYKERB [Suspect]
     Active Substance: LAPATINIB DITOSYLATE
     Indication: BREAST CANCER FEMALE
     Dosage: 1250 MG, QD
     Route: 048
     Dates: start: 20200504

REACTIONS (5)
  - Vitamin D deficiency [Unknown]
  - Diarrhoea [Unknown]
  - Confusional state [Unknown]
  - Crystal urine [Unknown]
  - Hypomagnesaemia [Unknown]
